FAERS Safety Report 12823569 (Version 1)
Quarter: 2016Q4

REPORT INFORMATION
  Report Type: Spontaneous
  Country: US (occurrence: US)
  Receive Date: 20161007
  Receipt Date: 20161007
  Transmission Date: 20170207
  Serious: Yes (Other)
  Sender: FDA-Public Use
  Company Number: US-CELGENEUS-USA-2016100454

PATIENT
  Sex: Female

DRUGS (1)
  1. THALOMID [Suspect]
     Active Substance: THALIDOMIDE
     Indication: MONOCLONAL GAMMOPATHY
     Dosage: 100 MILLIGRAM
     Route: 048
     Dates: start: 201512

REACTIONS (4)
  - Drug ineffective [Unknown]
  - Renal failure [Unknown]
  - Anaemia [Unknown]
  - Platelet count decreased [Unknown]
